FAERS Safety Report 5007874-4 (Version None)
Quarter: 2006Q2

REPORT INFORMATION
  Report Type: 
  Country: None (occurrence: None)
  Receive Date: 20060522
  Receipt Date: 20060222
  Transmission Date: 20061013
  Serious: Yes (Other)
  Sender: FDA-Public Use
  Company Number: PHRM2006FR00883

PATIENT
  Age: 49 Year
  Sex: Female
  Weight: 49 kg

DRUGS (1)
  1. VOLTARENE LP [Suspect]
     Indication: NECK PAIN
     Dosage: 75 MG/DAY AS NEEDED (50 TAB/YEAR)
     Route: 048
     Dates: start: 20000101, end: 20051201

REACTIONS (5)
  - EAR DISCOMFORT [None]
  - HYPOACUSIS [None]
  - TINNITUS [None]
  - VERTIGO [None]
  - VIRAL INFECTION [None]
